FAERS Safety Report 4724213-4 (Version None)
Quarter: 2005Q3

REPORT INFORMATION
  Report Type: 
  Country: None (occurrence: None)
  Receive Date: 20050726
  Receipt Date: 20050713
  Transmission Date: 20060218
  Serious: Yes (Other)
  Sender: FDA-Public Use
  Company Number: PHBS2005JP10084

PATIENT

DRUGS (1)
  1. VOLTAREN [Suspect]
     Dosage: 2 TAB/DAY
     Route: 048

REACTIONS (2)
  - RETINAL HAEMORRHAGE [None]
  - TOOTH DISORDER [None]
